FAERS Safety Report 4710850-X (Version None)
Quarter: 2005Q3

REPORT INFORMATION
  Report Type: 
  Country: None (occurrence: None)
  Receive Date: 20050711
  Receipt Date: 20050707
  Transmission Date: 20060218
  Serious: Yes (Hospitalization)
  Sender: FDA-Public Use
  Company Number: US-GLAXOSMITHKLINE-A0565317A

PATIENT
  Age: 33 Year
  Sex: Male

DRUGS (2)
  1. PAXIL [Suspect]
     Indication: SOCIAL PHOBIA
     Dosage: 30MG PER DAY
     Route: 048
     Dates: start: 20030101
  2. NO CONCURRENT MEDICATION [Concomitant]

REACTIONS (3)
  - ANGER [None]
  - DIZZINESS [None]
  - HOMICIDAL IDEATION [None]
